FAERS Safety Report 7570860-4 (Version None)
Quarter: 2011Q2

REPORT INFORMATION
  Report Type: 
  Country: None (occurrence: None)
  Receive Date: 20110624
  Receipt Date: 20110608
  Transmission Date: 20111010
  Serious: No
  Sender: FDA-Public Use
  Company Number: US-B.I. PHARMACEUTICALS,INC./RIDGEFIELD-2011-BP-12835BP

PATIENT
  Age: 75 Year
  Sex: Female
  Weight: 96.16 kg

DRUGS (6)
  1. ASPIRIN [Concomitant]
  2. PRAVASTATIN [Concomitant]
  3. HYDROCHLOROTHIAZIDE [Concomitant]
     Dates: start: 20100101
  4. PRADAXA [Suspect]
     Dosage: 300 MG
     Dates: start: 20110301
  5. CARVEDILOL [Concomitant]
     Dates: start: 20100101
  6. AMLODIPINE [Concomitant]
     Dates: start: 20100101

REACTIONS (1)
  - HAIR GROWTH ABNORMAL [None]
